FAERS Safety Report 19882567 (Version 3)
Quarter: 2021Q4

REPORT INFORMATION
  Report Type: Spontaneous
  Country: FR (occurrence: FR)
  Receive Date: 20210924
  Receipt Date: 20211029
  Transmission Date: 20220303
  Serious: Yes (Other)
  Sender: FDA-Public Use
  Company Number: FR-GILEAD-2021-0549892

PATIENT
  Age: 43 Year
  Sex: Male
  Weight: 69 kg

DRUGS (6)
  1. BIKTARVY [Suspect]
     Active Substance: BICTEGRAVIR SODIUM\EMTRICITABINE\TENOFOVIR ALAFENAMIDE FUMARATE
     Indication: Immunosuppression
     Dosage: 1 DOSAGE FORM, QD
     Route: 048
     Dates: start: 20210622
  2. BIKTARVY [Suspect]
     Active Substance: BICTEGRAVIR SODIUM\EMTRICITABINE\TENOFOVIR ALAFENAMIDE FUMARATE
     Indication: HIV infection
  3. BACTRIM [Concomitant]
     Active Substance: SULFAMETHOXAZOLE\TRIMETHOPRIM
     Dosage: 1 DOSAGE FORM
     Route: 048
     Dates: start: 20210622
  4. MIRTAZAPINE [Concomitant]
     Active Substance: MIRTAZAPINE
     Dosage: 15 MG
     Route: 048
     Dates: start: 20210601, end: 202108
  5. OXAZEPAM [Concomitant]
     Active Substance: OXAZEPAM
     Dosage: 10 MG, Q1WK PRN
  6. CHOLECALCIFEROL [Concomitant]
     Active Substance: CHOLECALCIFEROL
     Dosage: 100000 IU
     Dates: start: 20210622

REACTIONS (4)
  - Retinal detachment [Not Recovered/Not Resolved]
  - Eye disorder [Not Recovered/Not Resolved]
  - Visual field defect [Not Recovered/Not Resolved]
  - Visual impairment [Recovered/Resolved]

NARRATIVE: CASE EVENT DATE: 20210705
